FAERS Safety Report 5523188-8 (Version None)
Quarter: 2007Q4

REPORT INFORMATION
  Report Type: 
  Country: None (occurrence: None)
  Receive Date: 20071116
  Receipt Date: 20071112
  Transmission Date: 20080405
  Serious: Yes (Death, Hospitalization)
  Sender: FDA-Public Use
  Company Number: 2007SP022040

PATIENT
  Age: 7 Year
  Sex: Female
  Weight: 37 kg

DRUGS (7)
  1. TEMODAL [Suspect]
     Indication: BRAIN STEM GLIOMA
  2. BACTRIM [Concomitant]
  3. GLEEVEC [Concomitant]
  4. RINDERON [Concomitant]
  5. FAMOTIDINE [Concomitant]
  6. ERYTHROCIN [Concomitant]
  7. NAUZELIN [Concomitant]

REACTIONS (3)
  - HYPERLIPIDAEMIA [None]
  - PANCREATITIS ACUTE [None]
  - TUMOUR HAEMORRHAGE [None]
